FAERS Safety Report 17501714 (Version 1)
Quarter: 2020Q1

REPORT INFORMATION
  Report Type: Spontaneous
  Country: JP (occurrence: JP)
  Receive Date: 20200305
  Receipt Date: 20200305
  Transmission Date: 20200409
  Serious: Yes (Hospitalization, Other)
  Sender: FDA-Public Use
  Company Number: JP-PFIZER INC-2020096508

PATIENT
  Age: 72 Year
  Sex: Male
  Weight: 49 kg

DRUGS (13)
  1. GLUCONSAN K [Concomitant]
     Active Substance: POTASSIUM GLUCONATE
  2. TOVIAZ [Suspect]
     Active Substance: FESOTERODINE FUMARATE
     Indication: HYPERTONIC BLADDER
     Dosage: 4 MG, 1X/DAY
     Route: 048
     Dates: start: 201810, end: 2019
  3. NAFTOPIDIL [Concomitant]
     Active Substance: NAFTOPIDIL
     Dosage: 75 MG, UNK
  4. DEBERZA [Concomitant]
     Active Substance: TOFOGLIFLOZIN
  5. DAIPHEN [Concomitant]
     Active Substance: SULFAMETHOXAZOLE\TRIMETHOPRIM
  6. MAOTO [Concomitant]
     Active Substance: HERBALS
  7. OSELTAMIVIR [Concomitant]
     Active Substance: OSELTAMIVIR
  8. DONEPEZIL. [Concomitant]
     Active Substance: DONEPEZIL
  9. NAFTOPIDIL [Concomitant]
     Active Substance: NAFTOPIDIL
  10. MENESIT [Concomitant]
     Active Substance: CARBIDOPA\LEVODOPA
  11. VALSARTAN. [Concomitant]
     Active Substance: VALSARTAN
  12. PIOGLITAZONE. [Concomitant]
     Active Substance: PIOGLITAZONE
  13. ENSURE [ASCORBIC ACID;BIOTIN;CALCIUM CARBONATE;CALCIUM PANTOTHENATE;CA [Concomitant]

REACTIONS (3)
  - Urinary retention [Not Recovered/Not Resolved]
  - Urinary tract infection [Recovering/Resolving]
  - Dehydration [Unknown]

NARRATIVE: CASE EVENT DATE: 201902
